FAERS Safety Report 15389329 (Version 1)
Quarter: 2018Q3

REPORT INFORMATION
  Report Type: Spontaneous
  Country: US (occurrence: US)
  Receive Date: 20180917
  Receipt Date: 20180917
  Transmission Date: 20181010
  Serious: Yes (Other)
  Sender: FDA-Public Use
  Company Number: US-TOLMAR, INC.-2018US005806

PATIENT

DRUGS (4)
  1. ELIGARD [Suspect]
     Active Substance: LEUPROLIDE ACETATE
     Dosage: 22.5 MG, Q3MONTHS
     Route: 058
     Dates: start: 20180529
  2. EXEMESTANE. [Concomitant]
     Active Substance: EXEMESTANE
  3. ELIGARD [Suspect]
     Active Substance: LEUPROLIDE ACETATE
     Indication: BREAST CANCER
     Dosage: 22.5 MG, Q3MONTHS
     Route: 058
     Dates: start: 201608
  4. METOPROLOL. [Concomitant]
     Active Substance: METOPROLOL

REACTIONS (4)
  - Off label use [Unknown]
  - Arthralgia [Recovered/Resolved]
  - Product use in unapproved indication [Unknown]
  - Injection site mass [Unknown]

NARRATIVE: CASE EVENT DATE: 201608
